FAERS Safety Report 17571011 (Version 6)
Quarter: 2020Q2

REPORT INFORMATION
  Report Type: Spontaneous
  Country: US (occurrence: US)
  Receive Date: 20200323
  Receipt Date: 20200623
  Transmission Date: 20200713
  Serious: No
  Sender: FDA-Public Use
  Company Number: US-PFIZER INC-2020122309

PATIENT
  Age: 74 Year
  Sex: Female
  Weight: 74 kg

DRUGS (1)
  1. XALKORI [Suspect]
     Active Substance: CRIZOTINIB
     Indication: LUNG NEOPLASM MALIGNANT
     Dosage: 250 MG, 2X/DAY (BY MOUTH EVERY 12 HOURS, 1 CAPSULE IN THE MORNING AND 1 CAPSULE AT NIGHT)
     Route: 048
     Dates: start: 20200316

REACTIONS (5)
  - White blood cell count increased [Unknown]
  - Abdominal discomfort [Unknown]
  - Malaise [Unknown]
  - Nausea [Recovering/Resolving]
  - Headache [Not Recovered/Not Resolved]

NARRATIVE: CASE EVENT DATE: 2020
